FAERS Safety Report 26125361 (Version 1)
Quarter: 2025Q4

REPORT INFORMATION
  Report Type: Spontaneous
  Country: US (occurrence: None)
  Receive Date: 20251203
  Receipt Date: 20251203
  Transmission Date: 20260119
  Serious: Yes (Life-Threatening, Hospitalization, Disabling)
  Sender: FDA-CTU
  Company Number: None

PATIENT
  Age: 38 Year
  Sex: Female

DRUGS (6)
  1. NEXPLANON [Suspect]
     Active Substance: ETONOGESTREL
  2. PREGABALIN [Concomitant]
     Active Substance: PREGABALIN
  3. UBRELVY [Concomitant]
     Active Substance: UBROGEPANT
  4. EMGALITY [Concomitant]
     Active Substance: GALCANEZUMAB-GNLM
  5. monjureo [Concomitant]
  6. HYDROXYZINE HYDROCHLORIDE [Concomitant]
     Active Substance: HYDROXYZINE HYDROCHLORIDE

REACTIONS (4)
  - Contraceptive implant [None]
  - Optic disc oedema [None]
  - Idiopathic intracranial hypertension [None]
  - Occipital neuralgia [None]

NARRATIVE: CASE EVENT DATE: 20191001
